FAERS Safety Report 14255503 (Version 1)
Quarter: 2017Q4

REPORT INFORMATION
  Report Type: Spontaneous
  Country: US (occurrence: US)
  Receive Date: 20171206
  Receipt Date: 20171206
  Transmission Date: 20180321
  Serious: Yes (Other)
  Sender: FDA-Public Use
  Company Number: US-SUNOVION-2017SUN005174

PATIENT

DRUGS (3)
  1. LATUDA [Suspect]
     Active Substance: LURASIDONE HYDROCHLORIDE
     Dosage: UNK
     Route: 048
  2. LAMICTAL [Suspect]
     Active Substance: LAMOTRIGINE
  3. ZOLOFT [Suspect]
     Active Substance: SERTRALINE HYDROCHLORIDE

REACTIONS (2)
  - Depressed mood [Unknown]
  - Self-injurious ideation [Unknown]
